FAERS Safety Report 19438373 (Version 2)
Quarter: 2021Q3

REPORT INFORMATION
  Report Type: Spontaneous
  Country: US (occurrence: US)
  Receive Date: 20210619
  Receipt Date: 20210804
  Transmission Date: 20211014
  Serious: No
  Sender: FDA-Public Use
  Company Number: US-ASTRAZENECA-2021A509567

PATIENT
  Age: 59 Year
  Sex: Female
  Weight: 64.4 kg

DRUGS (1)
  1. BYDUREON BCISE [Suspect]
     Active Substance: EXENATIDE
     Indication: TYPE 2 DIABETES MELLITUS
     Route: 065
     Dates: start: 201703

REACTIONS (7)
  - Device leakage [Unknown]
  - Injection site mass [Unknown]
  - Ligament sprain [Recovered/Resolved]
  - Injury associated with device [Unknown]
  - Skin laceration [Unknown]
  - Needle issue [Unknown]
  - Incorrect dose administered by device [Unknown]

NARRATIVE: CASE EVENT DATE: 20201214
